FAERS Safety Report 4783656-3 (Version None)
Quarter: 2005Q3

REPORT INFORMATION
  Report Type: 
  Country: None (occurrence: None)
  Receive Date: 20050928
  Receipt Date: 20050916
  Transmission Date: 20060218
  Serious: Yes (Hospitalization)
  Sender: FDA-Public Use
  Company Number: CH-2005-019263

PATIENT
  Sex: Female

DRUGS (2)
  1. MIRENA [Suspect]
     Indication: CONTRACEPTION
     Dosage: 20 UG/DAY, CONT, INTRA-UTERINE
     Route: 015
     Dates: start: 20021222
  2. ORAL CONTRACEPTIVE LEVONORGESTREL-CONTAINING (ORAL CONTRACEPTIVE NOS) [Concomitant]

REACTIONS (1)
  - OVARIAN ADENOMA [None]
